FAERS Safety Report 17365513 (Version 3)
Quarter: 2020Q2

REPORT INFORMATION
  Report Type: Spontaneous
  Country: BR (occurrence: BR)
  Receive Date: 20200204
  Receipt Date: 20200522
  Transmission Date: 20200713
  Serious: Yes (Other)
  Sender: FDA-Public Use
  Company Number: BR-ELI_LILLY_AND_COMPANY-BR201908001008

PATIENT
  Sex: Female

DRUGS (6)
  1. HUMALOG MIX50/50 [Suspect]
     Active Substance: INSULIN LISPRO
     Indication: PRODUCT USED FOR UNKNOWN INDICATION
     Dosage: UNK, UNKNOWN
     Route: 065
     Dates: start: 2004
  2. GLIFAGE [Concomitant]
     Active Substance: METFORMIN HYDROCHLORIDE
     Indication: PRODUCT USED FOR UNKNOWN INDICATION
     Dosage: UNK, UNKNOWN
     Route: 065
  3. HUMALOG MIX50/50 [Suspect]
     Active Substance: INSULIN LISPRO
     Dosage: 25 INTERNATIONAL UNIT, UNKNOWN
     Route: 065
     Dates: start: 2004
  4. TRAMADOL. [Concomitant]
     Active Substance: TRAMADOL
     Indication: PRODUCT USED FOR UNKNOWN INDICATION
  5. HUMALOG MIX50/50 [Suspect]
     Active Substance: INSULIN LISPRO
     Dosage: 30 INTERNATIONAL UNIT, BID
     Route: 065
     Dates: start: 2004
  6. PACO [Concomitant]
     Active Substance: ACETAMINOPHEN\CODEINE PHOSPHATE
     Indication: PRODUCT USED FOR UNKNOWN INDICATION

REACTIONS (21)
  - Haemangioma [Not Recovered/Not Resolved]
  - Bone neoplasm [Unknown]
  - Visual impairment [Unknown]
  - Fall [Unknown]
  - Hyperkeratosis [Unknown]
  - Exostosis [Not Recovered/Not Resolved]
  - Spinal disorder [Unknown]
  - Functional gastrointestinal disorder [Unknown]
  - Underdose [Unknown]
  - Spinal pain [Unknown]
  - Sciatica [Not Recovered/Not Resolved]
  - Vision blurred [Recovered/Resolved]
  - Fatigue [Unknown]
  - Injection site bruising [Unknown]
  - Product administered at inappropriate site [Unknown]
  - Osteoarthritis [Not Recovered/Not Resolved]
  - Nerve compression [Unknown]
  - Night sweats [Recovered/Resolved]
  - Paraesthesia [Not Recovered/Not Resolved]
  - Gait disturbance [Not Recovered/Not Resolved]
  - Malaise [Recovered/Resolved]

NARRATIVE: CASE EVENT DATE: 2008
